FAERS Safety Report 7105050-2 (Version None)
Quarter: 2010Q4

REPORT INFORMATION
  Report Type: 
  Country: None (occurrence: None)
  Receive Date: 20101116
  Receipt Date: 20080430
  Transmission Date: 20110411
  Serious: No
  Sender: FDA-Public Use
  Company Number: US-KINGPHARMUSA00001-K200800508

PATIENT
  Sex: Female

DRUGS (1)
  1. SILVADENE [Suspect]
     Indication: THERMAL BURN
     Route: 061

REACTIONS (2)
  - NO ADVERSE EVENT [None]
  - WRONG TECHNIQUE IN DRUG USAGE PROCESS [None]
